FAERS Safety Report 9727636 (Version 2)
Quarter: 2013Q4

REPORT INFORMATION
  Report Type: Report from Study
  Country: KR (occurrence: KR)
  Receive Date: 20131203
  Receipt Date: 20131216
  Transmission Date: 20140711
  Serious: No
  Sender: FDA-Public Use
  Company Number: PHHY2013KR138087

PATIENT
  Age: 56 Year
  Sex: Male

DRUGS (4)
  1. AMN107 [Suspect]
     Indication: CHRONIC MYELOID LEUKAEMIA
     Dosage: 800 MG, PER DAY
     Route: 048
     Dates: start: 20120802
  2. COUGH SYRUP [Concomitant]
     Indication: NASOPHARYNGITIS
     Route: 048
     Dates: start: 20121008, end: 20121017
  3. PSEUDOEPHEDRINE [Concomitant]
     Indication: NASOPHARYNGITIS
     Dosage: 3 DF, UNK
     Route: 048
     Dates: start: 20121008, end: 20121017
  4. NAPROXEN [Concomitant]
     Indication: ARTHRALGIA
     Dosage: 550 MG, UNK
     Route: 048
     Dates: start: 20120726, end: 20120821

REACTIONS (1)
  - Constipation [Recovered/Resolved]
